FAERS Safety Report 10241311 (Version 1)
Quarter: 2014Q2

REPORT INFORMATION
  Report Type: Spontaneous
  Country: US (occurrence: US)
  Receive Date: 20140617
  Receipt Date: 20140617
  Transmission Date: 20141212
  Serious: No
  Sender: FDA-Public Use
  Company Number: US-009507513-1406USA001024

PATIENT
  Age: 21 Year
  Sex: Female
  Weight: 63.49 kg

DRUGS (1)
  1. NEXPLANON [Suspect]
     Indication: CONTRACEPTION
     Dosage: 1 ROD, EVERY 3 YEARS, INSERTED IN LEFT ARM
     Route: 059
     Dates: start: 20130628

REACTIONS (3)
  - Fall [Unknown]
  - Contusion [Unknown]
  - Pain in extremity [Unknown]
